FAERS Safety Report 9824556 (Version 2)
Quarter: 2014Q1

REPORT INFORMATION
  Report Type: Spontaneous
  Country: US (occurrence: US)
  Receive Date: 20140117
  Receipt Date: 20140117
  Transmission Date: 20141002
  Serious: Yes (Hospitalization)
  Sender: FDA-Public Use
  Company Number: US-GILEAD-2011-0038893

PATIENT
  Age: 72 Year
  Sex: Female

DRUGS (9)
  1. LETAIRIS [Suspect]
     Indication: PRODUCT USED FOR UNKNOWN INDICATION
     Route: 048
     Dates: start: 20110325, end: 20110413
  2. COZAAR [Concomitant]
  3. TOPROL-XL [Concomitant]
  4. ASPIR 81 [Concomitant]
  5. ANAGRELIDE [Concomitant]
  6. FUROSEMIDE [Concomitant]
  7. LEVOTHYROXINE [Concomitant]
  8. HYDROXYUREA [Concomitant]
  9. OMEGA-3 [Concomitant]

REACTIONS (3)
  - Swelling [Not Recovered/Not Resolved]
  - Dyspnoea [Not Recovered/Not Resolved]
  - Fluid overload [Unknown]
